FAERS Safety Report 19572586 (Version 1)
Quarter: 2021Q3

REPORT INFORMATION
  Report Type: Spontaneous
  Country: CN (occurrence: CN)
  Receive Date: 20210716
  Receipt Date: 20210716
  Transmission Date: 20211014
  Serious: Yes (Other)
  Sender: FDA-Public Use
  Company Number: CN-SA-2021SA233383

PATIENT
  Age: 85 Year
  Sex: Female

DRUGS (1)
  1. HARNAL [Suspect]
     Active Substance: TAMSULOSIN HYDROCHLORIDE
     Indication: URETHRAL DILATATION
     Dosage: 1 DF, ONCE DAILY
     Route: 048
     Dates: start: 20210626, end: 20210626

REACTIONS (6)
  - Faeces discoloured [Not Recovered/Not Resolved]
  - Vomiting [Recovering/Resolving]
  - Haematemesis [Recovered/Resolved]
  - Nausea [Unknown]
  - Occult blood positive [Not Recovered/Not Resolved]
  - Product use issue [Unknown]

NARRATIVE: CASE EVENT DATE: 20210626
